FAERS Safety Report 10047025 (Version 1)
Quarter: 2014Q1

REPORT INFORMATION
  Report Type: Spontaneous
  Country: GB (occurrence: None)
  Receive Date: 20140327
  Receipt Date: 20140327
  Transmission Date: 20141002
  Serious: Yes (Other)
  Sender: FDA-Public Use
  Company Number: AUR-APL-2014-03544

PATIENT
  Age: 62 Year
  Sex: Male

DRUGS (4)
  1. RIBAVIRIN [Suspect]
     Indication: HEPATITIS C
     Dosage: 600MG, 2 IN 1 D
     Route: 048
     Dates: start: 20131223
  2. PEGASYS [Suspect]
     Indication: HEPATITIS C
     Dosage: 180 MCG, 1 IN 1 WK
     Route: 058
     Dates: start: 20131223, end: 20140106
  3. LOPRESSOR (METOPROLOL TARTRATE) [Concomitant]
  4. PROGRAF (TACROLIMUS) [Concomitant]

REACTIONS (1)
  - Jaundice [None]
